FAERS Safety Report 13901474 (Version 2)
Quarter: 2017Q3

REPORT INFORMATION
  Report Type: Spontaneous
  Country: DE (occurrence: DE)
  Receive Date: 20170824
  Receipt Date: 20170921
  Transmission Date: 20171127
  Serious: Yes (Death, Other)
  Sender: FDA-Public Use
  Company Number: DE-ELI_LILLY_AND_COMPANY-DE201708007498

PATIENT
  Sex: Male

DRUGS (2)
  1. CYRAMZA [Suspect]
     Active Substance: RAMUCIRUMAB
     Indication: GASTRIC CANCER
     Dosage: 8 MG/KG, UNKNOWN
     Route: 042
  2. TAXOL [Concomitant]
     Active Substance: PACLITAXEL
     Indication: PALLIATIVE CARE
     Dosage: UNK, UNKNOWN
     Route: 065

REACTIONS (4)
  - Septic shock [Fatal]
  - Peritonitis [Unknown]
  - Diverticulitis [Unknown]
  - Large intestine perforation [Fatal]

NARRATIVE: CASE EVENT DATE: 2017
